FAERS Safety Report 6187549-9 (Version None)
Quarter: 2009Q2

REPORT INFORMATION
  Report Type: 
  Country: None (occurrence: None)
  Receive Date: 20090508
  Receipt Date: 20090427
  Transmission Date: 20091009
  Serious: Yes (Hospitalization)
  Sender: FDA-Public Use
  Company Number: CIP09001020

PATIENT
  Age: 49 Year
  Sex: Female

DRUGS (19)
  1. RISEDRONATE SODIUM [Suspect]
     Indication: OSTEOPOROSIS
     Dosage: 15 MG DAILY, ORAL
     Route: 048
     Dates: end: 20090130
  2. SULFAMETHOXAZOLE AND TRIMETHOPRIM [Suspect]
     Indication: POSTOPERATIVE CARE
     Dosage: 2 TABLETS DAILY, ORAL
     Route: 048
     Dates: start: 20090101, end: 20090130
  3. PROGRAF [Concomitant]
  4. OMEPRAZOLE [Concomitant]
  5. ZOLPIDEM [Concomitant]
  6. ACETAMINOPHEN [Concomitant]
  7. KONAKION [Concomitant]
  8. SODIUM BICARBONATE IN PLASTIC CONTAINER [Concomitant]
  9. ETALPHA	  /00318501/ (COLECALCIFEROL) [Concomitant]
  10. HUMULIN N [Concomitant]
  11. INNOHEP	/01707902/ (TINZAPARIN SODIUM) [Concomitant]
  12. NICOTINELL  /01033301/ (NICOTINE) [Concomitant]
  13. CELLCEPT [Concomitant]
  14. HUMALOG /00030501/ (INSULIN) [Concomitant]
  15. FUROSEMIDE [Concomitant]
  16. PREDNISOLONE [Concomitant]
  17. CANODERM (UREA) , 5 % [Concomitant]
  18. KALCIPOS (CALCIUM CARBONATE) [Concomitant]
  19. TRAMADOL HCL [Concomitant]

REACTIONS (2)
  - CONDITION AGGRAVATED [None]
  - RENAL FAILURE [None]
